FAERS Safety Report 15257886 (Version 2)
Quarter: 2018Q4

REPORT INFORMATION
  Report Type: Report from Study
  Country: None (occurrence: CA)
  Receive Date: 20180808
  Receipt Date: 20181003
  Transmission Date: 20190204
  Serious: Yes (Hospitalization)
  Sender: FDA-Public Use
  Company Number: CA-ABBVIE-18K-028-2444427-00

PATIENT
  Age: 25 Year
  Sex: Male
  Weight: 89 kg

DRUGS (1)
  1. HUMIRA [Suspect]
     Active Substance: ADALIMUMAB
     Indication: CROHN^S DISEASE
     Route: 058
     Dates: end: 20180718

REACTIONS (6)
  - Productive cough [Recovered/Resolved]
  - Abscess intestinal [Recovered/Resolved]
  - Fistula [Unknown]
  - Crohn^s disease [Recovered/Resolved]
  - Abscess intestinal [Recovered/Resolved]
  - Crohn^s disease [Recovered/Resolved]

NARRATIVE: CASE EVENT DATE: 20180521
